FAERS Safety Report 7110794-2 (Version None)
Quarter: 2010Q4

REPORT INFORMATION
  Report Type: 
  Country: None (occurrence: None)
  Receive Date: 20101118
  Receipt Date: 20101029
  Transmission Date: 20110411
  Serious: Yes (Hospitalization)
  Sender: FDA-Public Use
  Company Number: FR-PFIZER INC-2010129161

PATIENT
  Sex: Male

DRUGS (11)
  1. TAHOR [Suspect]
     Dosage: 10 MG, UNK
     Route: 048
  2. INIPOMP [Suspect]
     Dosage: 40 G, 1X/DAY
     Route: 048
     Dates: end: 20100818
  3. TEGRETOL [Suspect]
     Dosage: 600 MG, 2X/DAY
     Route: 048
     Dates: start: 20100818, end: 20100819
  4. TEGRETOL [Suspect]
     Dosage: 400 MG, 2X/DAY
     Route: 048
  5. TRIATEC [Suspect]
     Dosage: 10 MG, DAILY
     Route: 048
  6. KARDEGIC [Concomitant]
     Dosage: 75 MG, 1X/DAY
     Route: 048
  7. BISOPROLOL FUMARATE [Concomitant]
     Dosage: 5 MG, 1X/DAY
     Route: 048
  8. VASTAREL [Concomitant]
     Dosage: 20 MG, 60 MG, UNK
     Route: 048
  9. BRONCHODUAL [Concomitant]
     Dosage: 3 DF, DAILY
     Route: 055
  10. BECOTIDE [Concomitant]
     Dosage: 4 DF, DAILY
     Route: 055
  11. PERMIXON [Concomitant]
     Dosage: 160 MG, 320 MG, 1X/DAY
     Route: 048
     Dates: end: 20100818

REACTIONS (2)
  - GENERAL PHYSICAL HEALTH DETERIORATION [None]
  - HYPONATRAEMIA [None]
